FAERS Safety Report 14333898 (Version 2)
Quarter: 2018Q1

REPORT INFORMATION
  Report Type: Spontaneous
  Country: JP (occurrence: JP)
  Receive Date: 20171228
  Receipt Date: 20180103
  Transmission Date: 20180509
  Serious: Yes (Hospitalization, Other)
  Sender: FDA-Public Use
  Company Number: JP-PFIZER INC-2017535393

PATIENT
  Age: 31 Year
  Sex: Female
  Weight: 38 kg

DRUGS (3)
  1. AZULFIDINE EN-TABS [Suspect]
     Active Substance: SULFASALAZINE
     Dosage: 1000 MG, 1X/DAY
     Route: 048
     Dates: start: 20171031, end: 20171128
  2. AZULFIDINE EN-TABS [Suspect]
     Active Substance: SULFASALAZINE
     Indication: RHEUMATOID ARTHRITIS
     Dosage: 500 MG, 1X/DAY
     Route: 048
     Dates: start: 20171004
  3. CELECOXIB. [Concomitant]
     Active Substance: CELECOXIB
     Indication: PAIN
     Dosage: 100 MG, 1X/DAY
     Route: 048
     Dates: start: 20171123, end: 20171125

REACTIONS (2)
  - Agranulocytosis [Recovered/Resolved]
  - Febrile neutropenia [Recovering/Resolving]

NARRATIVE: CASE EVENT DATE: 20171128
